FAERS Safety Report 6905222-3 (Version None)
Quarter: 2010Q3

REPORT INFORMATION
  Report Type: 
  Country: None (occurrence: None)
  Receive Date: 20100730
  Receipt Date: 20100717
  Transmission Date: 20110219
  Serious: Yes (Hospitalization, Other)
  Sender: FDA-Public Use
  Company Number: 2010AP001482

PATIENT
  Age: 67 Year
  Sex: Male

DRUGS (1)
  1. LITHIUM CARBONATE CAP [Suspect]
     Indication: BIPOLAR DISORDER
     Dates: start: 19960101

REACTIONS (17)
  - ATRIAL FIBRILLATION [None]
  - BALANCE DISORDER [None]
  - CACHEXIA [None]
  - CONFUSIONAL STATE [None]
  - DRUG LEVEL BELOW THERAPEUTIC [None]
  - GAIT DISTURBANCE [None]
  - HALLUCINATION, VISUAL [None]
  - HYPERNATRAEMIA [None]
  - HYPERPARATHYROIDISM [None]
  - NAUSEA [None]
  - NEPHROGENIC DIABETES INSIPIDUS [None]
  - PSYCHOTIC DISORDER [None]
  - PYREXIA [None]
  - THERAPEUTIC AGENT TOXICITY [None]
  - THYROTOXIC CRISIS [None]
  - TREMOR [None]
  - VOMITING [None]
